FAERS Safety Report 11505016 (Version 1)
Quarter: 2015Q3

REPORT INFORMATION
  Report Type: Spontaneous
  Country: IT (occurrence: IT)
  Receive Date: 20150915
  Receipt Date: 20150915
  Transmission Date: 20151125
  Serious: Yes (Other)
  Sender: FDA-Public Use
  Company Number: IT-ACCORD-033643

PATIENT
  Age: 33 Year
  Sex: Female

DRUGS (4)
  1. HYDROCHLOROTHIAZIDE. [Suspect]
     Active Substance: HYDROCHLOROTHIAZIDE
     Indication: HYPERTENSION
  2. TELMISARTAN. [Suspect]
     Active Substance: TELMISARTAN
     Indication: HYPERTENSION
     Dosage: INITIALLY, MONOTHERAPY AT 40 MG/DAY, THEN IN COMBINATION WITH HYDROCHLOROTHIAZIDE AT 80 MG/DAY
  3. AMLODIPINE [Suspect]
     Active Substance: AMLODIPINE BESYLATE
     Indication: HYPERTENSION
  4. METHYLDOPA. [Suspect]
     Active Substance: METHYLDOPA
     Indication: HYPERTENSION

REACTIONS (5)
  - Oligohydramnios [Unknown]
  - Pre-eclampsia [Unknown]
  - Drug ineffective [Unknown]
  - Meconium stain [Unknown]
  - Exposure during pregnancy [Unknown]
